FAERS Safety Report 25995041 (Version 1)
Quarter: 2025Q4

REPORT INFORMATION
  Report Type: Report from Study
  Country: CA (occurrence: CA)
  Receive Date: 20251104
  Receipt Date: 20251104
  Transmission Date: 20260117
  Serious: Yes (Other)
  Sender: ALEXION PHARMACEUTICALS
  Company Number: CA-AstraZeneca-2024A087151

PATIENT
  Sex: Male
  Weight: 80 kg

DRUGS (7)
  1. DURVALUMAB [Suspect]
     Active Substance: DURVALUMAB
     Indication: Biliary neoplasm
     Dosage: 1500 MILLIGRAM, Q3W
     Dates: start: 20231020, end: 20240409
  2. DURVALUMAB [Suspect]
     Active Substance: DURVALUMAB
     Dosage: 1500 MILLIGRAM, Q4W
     Dates: start: 20231020
  3. DURVALUMAB [Suspect]
     Active Substance: DURVALUMAB
     Dosage: 1500 MILLIGRAM, Q4W
     Dates: start: 20231020
  4. DURVALUMAB [Suspect]
     Active Substance: DURVALUMAB
     Dosage: 1500 MILLIGRAM, Q4W
     Dates: start: 20231020
  5. LEVODOPA [Concomitant]
     Active Substance: LEVODOPA
     Dosage: UNK
     Route: 065
  6. AMLODIPINE [Concomitant]
     Active Substance: AMLODIPINE BESYLATE
     Dosage: UNK
     Route: 065
  7. VANCOMYCIN [Concomitant]
     Active Substance: VANCOMYCIN
     Dosage: UNK
     Route: 065

REACTIONS (3)
  - Bile duct cancer recurrent [Unknown]
  - Clostridium difficile infection [Recovered/Resolved]
  - Inappropriate schedule of product administration [Unknown]
